FAERS Safety Report 4263283-7 (Version None)
Quarter: 2004Q1

REPORT INFORMATION
  Report Type: 
  Country: None (occurrence: None)
  Receive Date: 20040104
  Receipt Date: 20040104
  Transmission Date: 20041129
  Serious: Yes (Hospitalization)
  Sender: FDA-Public Use
  Company Number: None

PATIENT
  Age: 61 Year
  Sex: Male

DRUGS (9)
  1. METFORMIN HCL [Suspect]
  2. GLYBURIDE [Concomitant]
  3. SIMVOSTATIN [Concomitant]
  4. ZANTAC [Concomitant]
  5. LISINOPRIL [Concomitant]
  6. FLUOXETINE [Concomitant]
  7. METOPROLOL [Concomitant]
  8. CIMETIDINE HCL [Concomitant]
  9. PROTONIX [Concomitant]

REACTIONS (8)
  - ALCOHOLISM [None]
  - CHEST DISCOMFORT [None]
  - DYSPNOEA [None]
  - LACTIC ACIDOSIS [None]
  - PROTEIN URINE PRESENT [None]
  - URINE ANALYSIS ABNORMAL [None]
  - URINE KETONE BODY PRESENT [None]
  - VOMITING [None]
